FAERS Safety Report 4442152-3 (Version None)
Quarter: 2004Q3

REPORT INFORMATION
  Report Type: 
  Country: None (occurrence: None)
  Receive Date: 20040903
  Receipt Date: 20040722
  Transmission Date: 20050211
  Serious: Yes (Other)
  Sender: FDA-Public Use
  Company Number: 2004UW15457

PATIENT
  Age: 72 Year
  Sex: Female
  Weight: 68.0396 kg

DRUGS (4)
  1. CRESTOR [Suspect]
     Indication: BLOOD CHOLESTEROL INCREASED
     Dosage: 10 MG PO
     Route: 048
     Dates: start: 20040122
  2. CRESTOR [Suspect]
     Indication: HYPERTENSION
     Dosage: 10 MG PO
     Route: 048
     Dates: start: 20040122
  3. HYZAAR [Concomitant]
  4. LEVOXYL [Concomitant]

REACTIONS (7)
  - ABDOMINAL PAIN UPPER [None]
  - DIARRHOEA [None]
  - GASTRITIS [None]
  - HAEMATOCHEZIA [None]
  - MYALGIA [None]
  - NAUSEA [None]
  - ULCER [None]
